FAERS Safety Report 9034630 (Version 1)
Quarter: 2013Q1

REPORT INFORMATION
  Report Type: Spontaneous
  Country: US (occurrence: None)
  Receive Date: 20130116
  Receipt Date: 20130116
  Transmission Date: 20140127
  Serious: No
  Sender: FDA-Public Use
  Company Number: None

PATIENT
  Age: 48 Year
  Sex: Female

DRUGS (2)
  1. AZITHROMYCIN [Suspect]
     Dates: start: 20110616, end: 20110622
  2. MULTIPLE CAM PRODUCTS [Suspect]
     Dates: start: 20100828, end: 20110908

REACTIONS (1)
  - Drug-induced liver injury [None]
